FAERS Safety Report 5806486-X (Version None)
Quarter: 2008Q3

REPORT INFORMATION
  Report Type: 
  Country: None (occurrence: None)
  Receive Date: 20080710
  Receipt Date: 20080630
  Transmission Date: 20090109
  Serious: Yes (Other)
  Sender: FDA-Public Use
  Company Number: JP-PFIZER INC-2008055103

PATIENT
  Age: 25 Year
  Sex: Male
  Weight: 65 kg

DRUGS (3)
  1. HALCION [Suspect]
     Indication: INSOMNIA
     Dosage: DAILY DOSE:.5MG
     Route: 048
     Dates: start: 20030101, end: 20080612
  2. SILECE [Suspect]
     Indication: INSOMNIA
     Dosage: DAILY DOSE:4MG
     Route: 048
     Dates: start: 20030101, end: 20080612
  3. LITHIUM CARBONATE [Suspect]
     Indication: BIPOLAR I DISORDER
     Dosage: DAILY DOSE:600MG
     Route: 048
     Dates: start: 20030101, end: 20080612

REACTIONS (1)
  - RHABDOMYOLYSIS [None]
